FAERS Safety Report 18200875 (Version 2)
Quarter: 2020Q3

REPORT INFORMATION
  Report Type: Spontaneous
  Country: US (occurrence: US)
  Receive Date: 20200826
  Receipt Date: 20200908
  Transmission Date: 20201103
  Serious: Yes (Death, Other)
  Sender: FDA-Public Use
  Company Number: US-GILEAD-2020-0492145

PATIENT
  Age: 79 Year
  Sex: Female
  Weight: 36.01 kg

DRUGS (28)
  1. INSULIN LISPRO [Concomitant]
     Active Substance: INSULIN LISPRO
     Indication: BLOOD GLUCOSE INCREASED
     Dosage: 2 UNITS
     Route: 058
     Dates: start: 20200823, end: 20200825
  2. LEVOTHYROXINE. [Concomitant]
     Active Substance: LEVOTHYROXINE
     Indication: HYPOTHYROIDISM
     Dosage: 75 MCG
     Route: 048
     Dates: start: 20200823, end: 20200825
  3. VANCOMYCIN [Concomitant]
     Active Substance: VANCOMYCIN
     Indication: INFECTION
     Dosage: 500 MG
     Route: 042
     Dates: start: 20200823, end: 20200825
  4. ALBUTEROL HFA [Concomitant]
     Active Substance: ALBUTEROL SULFATE
     Indication: RESPIRATORY FAILURE
     Dosage: 2 PUFF
     Route: 055
     Dates: start: 20200824, end: 20200825
  5. BISACODYL. [Concomitant]
     Active Substance: BISACODYL
     Indication: CONSTIPATION
     Dosage: 10 MG
     Route: 054
     Dates: start: 20200824, end: 20200824
  6. IPRATROPIUM BROMIDE/ALBUTEROL SULFATE [Concomitant]
     Active Substance: ALBUTEROL SULFATE\IPRATROPIUM BROMIDE
     Indication: RESPIRATORY FAILURE
     Dosage: 3 ML
     Route: 055
     Dates: start: 20200822, end: 20200825
  7. LIDOCAINE. [Concomitant]
     Active Substance: LIDOCAINE
     Indication: PAIN
     Dosage: 5%
     Route: 062
     Dates: start: 20200823, end: 20200825
  8. OXYGEN. [Concomitant]
     Active Substance: OXYGEN
  9. NOREPINEPHRINE. [Concomitant]
     Active Substance: NOREPINEPHRINE
  10. HEPARIN [Concomitant]
     Active Substance: HEPARIN SODIUM
     Indication: THROMBOSIS PROPHYLAXIS
     Dosage: 5000 UNITS
     Route: 058
     Dates: start: 20200822, end: 20200825
  11. PIPERACILLIN/TAZOBACTAM [Concomitant]
     Active Substance: PIPERACILLIN SODIUM\TAZOBACTAM SODIUM
     Indication: INFECTION
     Dosage: 4.5 G
     Route: 042
     Dates: start: 20200823, end: 20200825
  12. NALOXONE [Concomitant]
     Active Substance: NALOXONE
     Dosage: 0.4 MG
     Dates: start: 20200825
  13. ASPIRIN (E.C.) [Concomitant]
     Active Substance: ASPIRIN
     Dosage: 81 MG
     Route: 048
     Dates: start: 20200822, end: 20200825
  14. DOCUSATE [Concomitant]
     Active Substance: DOCUSATE
     Indication: CONSTIPATION
     Dosage: 100 G
     Route: 048
     Dates: start: 20200824, end: 20200825
  15. PANTOPRAZOLE [Concomitant]
     Active Substance: PANTOPRAZOLE
     Dosage: 20 G
     Route: 048
     Dates: start: 20200823, end: 20200824
  16. VITAMIN D3 [Concomitant]
     Active Substance: CHOLECALCIFEROL
     Indication: SUPPLEMENTATION THERAPY
     Dosage: 2000 UNITS
     Route: 048
     Dates: start: 20200824, end: 20200825
  17. ACETAMINOPHEN. [Concomitant]
     Active Substance: ACETAMINOPHEN
     Indication: PAIN
     Dosage: 1 G
     Route: 048
     Dates: start: 20200823, end: 20200825
  18. DEXAMETHASONE. [Concomitant]
     Active Substance: DEXAMETHASONE
     Indication: COVID-19
     Dosage: 6 MG
     Route: 048
     Dates: start: 20200824, end: 20200824
  19. MUPIROCIN. [Concomitant]
     Active Substance: MUPIROCIN
     Dosage: 2%
     Route: 061
     Dates: start: 20200823, end: 20200825
  20. REMDESIVIR. [Suspect]
     Active Substance: REMDESIVIR
     Indication: COVID-19
     Dosage: 200 MG, ONCE
     Route: 042
     Dates: start: 20200824, end: 20200824
  21. ASCORBIC ACID. [Concomitant]
     Active Substance: ASCORBIC ACID
     Dosage: 500 MG
     Route: 048
     Dates: start: 20200824, end: 20200825
  22. POLYETHYLENE [Concomitant]
     Active Substance: HIGH DENSITY POLYETHYLENE
     Indication: CONSTIPATION
     Dosage: 17 G
     Route: 048
     Dates: start: 20200823, end: 20200825
  23. PROPRANOLOL [Concomitant]
     Active Substance: PROPRANOLOL HYDROCHLORIDE
     Indication: ATRIAL FIBRILLATION
     Dosage: 20 G
     Route: 048
     Dates: start: 20200822, end: 20200825
  24. SENNA ACUTIFOLIA [Concomitant]
     Indication: CONSTIPATION
     Dosage: 8.6 MG
     Route: 048
     Dates: start: 20200823, end: 20200825
  25. TOCOPHEROL [Concomitant]
     Active Substance: TOCOPHEROL
     Indication: SUPPLEMENTATION THERAPY
     Dosage: UNK
     Route: 048
     Dates: start: 20200822, end: 20200825
  26. ZINC SULFATE. [Concomitant]
     Active Substance: ZINC SULFATE
     Indication: SUPPLEMENTATION THERAPY
     Dosage: 220 MG
     Route: 048
     Dates: start: 20200824, end: 20200825
  27. OXYCODONE [Suspect]
     Active Substance: OXYCODONE
     Indication: PAIN
     Dosage: 5 MG
     Route: 048
     Dates: start: 20200824, end: 20200824
  28. LACTOBACILLUS [Concomitant]
     Active Substance: LACTOBACILLUS ACIDOPHILUS
     Dosage: 1 G
     Route: 048
     Dates: start: 20200823, end: 20200825

REACTIONS (4)
  - COVID-19 [Fatal]
  - Cardio-respiratory arrest [Fatal]
  - Pneumonia [Fatal]
  - Acute respiratory failure [Fatal]

NARRATIVE: CASE EVENT DATE: 20200825
